FAERS Safety Report 25759680 (Version 1)
Quarter: 2025Q3

REPORT INFORMATION
  Report Type: Report from Study
  Country: EU (occurrence: EU)
  Receive Date: 20250904
  Receipt Date: 20250904
  Transmission Date: 20251021
  Serious: Yes (Other)
  Sender: BIOCODEX
  Company Number: EU-BIOCODEX2-2025001354

PATIENT
  Age: 324 Month
  Sex: Male
  Weight: 48 kg

DRUGS (3)
  1. STIRIPENTOL [Suspect]
     Active Substance: STIRIPENTOL
     Indication: Lennox-Gastaut syndrome
     Route: 065
  2. cenobamate 250 mg [Concomitant]
     Indication: Product used for unknown indication
     Route: 065
  3. clobazam 5 mg [Concomitant]
     Indication: Product used for unknown indication
     Dosage: 5 MG X2/DIE
     Route: 065

REACTIONS (3)
  - Off label use [Unknown]
  - Somnolence [Unknown]
  - Generalised tonic-clonic seizure [Recovered/Resolved]
